FAERS Safety Report 20336007 (Version 1)
Quarter: 2022Q1

REPORT INFORMATION
  Report Type: Spontaneous
  Country: SG (occurrence: None)
  Receive Date: 20220114
  Receipt Date: 20220114
  Transmission Date: 20220423
  Serious: Yes (Life-Threatening, Disabling, Other)
  Sender: FDA-Public Use
  Company Number: None

PATIENT
  Age: 26 Year
  Sex: Male
  Weight: 56 kg

DRUGS (1)
  1. HYPERRAB S/D [Suspect]
     Active Substance: HUMAN RABIES VIRUS IMMUNE GLOBULIN
     Indication: Animal bite
     Route: 030
     Dates: start: 20130401, end: 20130430

REACTIONS (11)
  - Anxiety [None]
  - Mood swings [None]
  - Ear pain [None]
  - Insomnia [None]
  - Paraesthesia [None]
  - Tinnitus [None]
  - Vision blurred [None]
  - Feeling cold [None]
  - White matter lesion [None]
  - Variant Creutzfeldt-Jakob disease [None]
  - Magnetic resonance imaging head abnormal [None]

NARRATIVE: CASE EVENT DATE: 20130401
